FAERS Safety Report 11393996 (Version 2)
Quarter: 2015Q3

REPORT INFORMATION
  Report Type: Report from Study
  Country: CA (occurrence: CA)
  Receive Date: 20150819
  Receipt Date: 20150824
  Transmission Date: 20151125
  Serious: Yes (Hospitalization, Other)
  Sender: FDA-Public Use
  Company Number: PHHY2013CA110056

PATIENT
  Age: 58 Year
  Sex: Female

DRUGS (10)
  1. QVAR [Concomitant]
     Active Substance: BECLOMETHASONE DIPROPIONATE
     Indication: PRODUCT USED FOR UNKNOWN INDICATION
     Dosage: UNK
     Route: 065
  2. XOLAIR [Suspect]
     Active Substance: OMALIZUMAB
     Dosage: 300 MG, EVERY FOUR WEEK
     Route: 058
     Dates: start: 20131126
  3. VENTOLIN [Concomitant]
     Active Substance: ALBUTEROL SULFATE
     Indication: PRODUCT USED FOR UNKNOWN INDICATION
     Dosage: UNK
     Route: 065
  4. XOLAIR [Suspect]
     Active Substance: OMALIZUMAB
     Indication: ASTHMA
     Dosage: 300 MG, EVERY FOUR WEEK
     Route: 058
     Dates: start: 20120502
  5. XOLAIR [Suspect]
     Active Substance: OMALIZUMAB
     Dosage: 300 MG, UNK
     Route: 058
     Dates: start: 20141020
  6. PREDNISONE. [Suspect]
     Active Substance: PREDNISONE
     Indication: PRODUCT USED FOR UNKNOWN INDICATION
     Dosage: 25 MG, QD
     Route: 065
  7. ADVAIR HFA [Concomitant]
     Active Substance: FLUTICASONE PROPIONATE\SALMETEROL XINAFOATE
     Indication: PRODUCT USED FOR UNKNOWN INDICATION
     Dosage: 2 DF, BID
     Route: 065
  8. SYMBICORT [Concomitant]
     Active Substance: BUDESONIDE\FORMOTEROL FUMARATE DIHYDRATE
     Indication: PRODUCT USED FOR UNKNOWN INDICATION
     Dosage: UNK
     Route: 065
  9. SINGULAIR [Concomitant]
     Active Substance: MONTELUKAST SODIUM
     Indication: PRODUCT USED FOR UNKNOWN INDICATION
     Dosage: UNK
     Route: 065
  10. PREDNISONE. [Suspect]
     Active Substance: PREDNISONE
     Dosage: 20 MG, UNK
     Route: 065

REACTIONS (19)
  - Nodule [Recovered/Resolved]
  - Hyperhidrosis [Unknown]
  - Granuloma [Unknown]
  - Blood glucose fluctuation [Unknown]
  - Asthma [Recovering/Resolving]
  - Sarcoidosis [Unknown]
  - Hyperglycaemia [Recovered/Resolved]
  - Obstructive airways disorder [Unknown]
  - Seasonal allergy [Unknown]
  - Cough [Unknown]
  - Rash [Recovered/Resolved]
  - Wheezing [Unknown]
  - Malaise [Unknown]
  - Emphysema [Unknown]
  - Dyspnoea [Unknown]
  - Peripheral swelling [Recovered/Resolved]
  - Polyuria [Unknown]
  - Fatigue [Unknown]
  - Polydipsia [Unknown]

NARRATIVE: CASE EVENT DATE: 20130826
